FAERS Safety Report 8542850-6 (Version None)
Quarter: 2012Q3

REPORT INFORMATION
  Report Type: 
  Country: None (occurrence: None)
  Receive Date: 20120727
  Receipt Date: 20120720
  Transmission Date: 20120928
  Serious: No
  Sender: FDA-Public Use
  Company Number: US-BIOGENIDEC-2012BI026574

PATIENT
  Age: 47 Year
  Sex: Female

DRUGS (2)
  1. AVONEX [Suspect]
     Route: 030
     Dates: start: 20080507
  2. AVONEX [Suspect]
     Indication: MULTIPLE SCLEROSIS
     Route: 030
     Dates: start: 19990303, end: 20071111

REACTIONS (9)
  - HYPOPHAGIA [None]
  - INSOMNIA [None]
  - FATIGUE [None]
  - CENTRAL NERVOUS SYSTEM LESION [None]
  - HYPERTENSION [None]
  - FACIAL PAIN [None]
  - HEADACHE [None]
  - MULTIPLE SCLEROSIS RELAPSE [None]
  - DYSKINESIA [None]
